FAERS Safety Report 11855900 (Version 1)
Quarter: 2015Q4

REPORT INFORMATION
  Report Type: Other
  Country: IT (occurrence: IT)
  Receive Date: 20151221
  Receipt Date: 20151221
  Transmission Date: 20160305
  Serious: Yes (Hospitalization)
  Sender: FDA-Public Use
  Company Number: IT-NSR_02287_2015

PATIENT
  Age: 54 Year
  Sex: Female

DRUGS (2)
  1. METOCLOPRAMIDE. [Suspect]
     Active Substance: METOCLOPRAMIDE
     Indication: NAUSEA
     Dosage: DF
  2. METOCLOPRAMIDE. [Suspect]
     Active Substance: METOCLOPRAMIDE
     Indication: VOMITING
     Dosage: DF

REACTIONS (10)
  - Back pain [Recovered/Resolved]
  - Tremor [Recovered/Resolved]
  - Cardiogenic shock [Recovered/Resolved]
  - Hypertension [Recovered/Resolved]
  - Dyspnoea exertional [Recovered/Resolved]
  - Orthostatic hypotension [Recovered/Resolved]
  - Cardiac failure acute [Recovered/Resolved]
  - Viral myocarditis [Recovered/Resolved]
  - Gastrooesophageal reflux disease [Recovered/Resolved]
  - Phaeochromocytoma [Recovered/Resolved]
